FAERS Safety Report 18257335 (Version 2)
Quarter: 2020Q4

REPORT INFORMATION
  Report Type: Other
  Country: GB (occurrence: GB)
  Receive Date: 20200911
  Receipt Date: 20201007
  Transmission Date: 20210113
  Serious: Yes (Other)
  Sender: FDA-Public Use
  Company Number: GB-ROCHE-2669187

PATIENT
  Age: 39 Year
  Sex: Male
  Weight: 80.9 kg

DRUGS (5)
  1. BEVACIZUMAB. [Suspect]
     Active Substance: BEVACIZUMAB
     Indication: HEPATOCELLULAR CARCINOMA
     Dosage: DAY 1, 3- WEEKLY
     Route: 042
     Dates: start: 20200805
  2. TENOFOVIR [Concomitant]
     Active Substance: TENOFOVIR
     Indication: HEPATITIS B
     Dosage: ONGOING
     Route: 048
     Dates: start: 20200330
  3. MORPHINE SULPHATE [Concomitant]
     Active Substance: MORPHINE SULFATE
     Indication: PAIN
     Dosage: AS REQUIRED 4 HOURLY, ONGOING
     Route: 048
     Dates: start: 20200505
  4. ATEZOLIZUMAB. [Suspect]
     Active Substance: ATEZOLIZUMAB
     Indication: HEPATOCELLULAR CARCINOMA
     Dosage: DAY 1 3 WEEKLY
     Route: 042
     Dates: start: 20200805
  5. COCODAMOL [Concomitant]
     Active Substance: ACETAMINOPHEN\CODEINE PHOSPHATE
     Indication: PAIN
     Dosage: 1-2 TABLETS AS REQUIRED, ONGOING
     Route: 048
     Dates: start: 20200313

REACTIONS (8)
  - Haemoglobin increased [Not Recovered/Not Resolved]
  - Oropharyngeal candidiasis [Not Recovered/Not Resolved]
  - Hypertension [Not Recovered/Not Resolved]
  - Dizziness [Not Recovered/Not Resolved]
  - Fatigue [Not Recovered/Not Resolved]
  - Headache [Not Recovered/Not Resolved]
  - Diarrhoea [Recovered/Resolved]
  - Mouth ulceration [Recovered/Resolved]

NARRATIVE: CASE EVENT DATE: 20200818
